FAERS Safety Report 9879713 (Version 1)
Quarter: 2014Q1

REPORT INFORMATION
  Report Type: Spontaneous
  Country: AR (occurrence: AR)
  Receive Date: 20140206
  Receipt Date: 20140206
  Transmission Date: 20141002
  Serious: Yes (Other)
  Sender: FDA-Public Use
  Company Number: PHHY2014AR014652

PATIENT
  Sex: Female

DRUGS (10)
  1. CICLOSPORIN [Suspect]
     Dosage: 40 MG, PER DAY
     Route: 064
  2. CICLOSPORIN [Suspect]
     Dosage: 3.5 MG/KG, PER DAY
     Route: 064
  3. CICLOSPORIN [Suspect]
     Dosage: 7.2 MG/KG, PER DAY
     Route: 064
  4. PREDNISONE [Suspect]
     Dosage: 16 MG, PER DAY
     Route: 064
  5. FUROSEMIDE [Suspect]
     Dosage: 40 MG, PER DAY
     Route: 064
  6. FUROSEMIDE [Suspect]
     Dosage: 80 MG, PER DAY
     Route: 064
  7. OXYTOCIN [Suspect]
     Route: 064
  8. NIFEDIPINE [Suspect]
     Dosage: 5 MG, UNK
     Route: 064
  9. PRAZOSIN [Suspect]
     Dosage: 1.5 MG, PER DAY
     Route: 064
  10. PRAZOSIN [Suspect]
     Dosage: 2 MG, PER DAY
     Route: 064

REACTIONS (5)
  - Low birth weight baby [Unknown]
  - Neonatal respiratory distress syndrome [Unknown]
  - Premature baby [Unknown]
  - Jaundice [Unknown]
  - Foetal exposure during pregnancy [Unknown]
